FAERS Safety Report 16353500 (Version 1)
Quarter: 2019Q2

REPORT INFORMATION
  Report Type: Report from Study
  Country: IE (occurrence: IE)
  Receive Date: 20190524
  Receipt Date: 20190524
  Transmission Date: 20190711
  Serious: Yes (Hospitalization)
  Sender: FDA-Public Use
  Company Number: IE-PFIZER INC-2019215738

PATIENT
  Age: 72 Year
  Sex: Male

DRUGS (10)
  1. MEROPENEM. [Suspect]
     Active Substance: MEROPENEM
     Dosage: UNK (RECONSTITUTED MEROPENEM IN A BAXTER SALINE INTERMATE)
     Route: 065
     Dates: start: 20190408
  2. SODIUM CHLORIDE. [Suspect]
     Active Substance: SODIUM CHLORIDE
     Dosage: UNK (USED IN COMPOUNDING SOURCE B HEPARIN SODIUM 10 IU/ML)
     Route: 065
  3. HEPARIN SODIUM. [Suspect]
     Active Substance: HEPARIN SODIUM
     Dosage: UNK (SOURCE B HEPARIN SODIUM 10 IU/ML)
     Route: 065
  4. SODIUM CHLORIDE. [Suspect]
     Active Substance: SODIUM CHLORIDE
     Dosage: UNK (USED IN COMPOUNDING SOURCE B HEPARIN SODIUM 10 IU/ML)
     Route: 065
  5. SODIUM CHLORIDE. [Suspect]
     Active Substance: SODIUM CHLORIDE
     Dosage: UNK (RECONSTITUTED MEROPENEM IN A BAXTER SALINE INTERMATE)
     Route: 065
     Dates: start: 20190408
  6. SODIUM CHLORIDE. [Suspect]
     Active Substance: SODIUM CHLORIDE
     Dosage: UNK (RECONSTITUTED MEROPENEM IN A BAXTER SALINE INTERMATE)
     Route: 065
     Dates: start: 20190408
  7. HEPARIN SODIUM. [Suspect]
     Active Substance: HEPARIN SODIUM
     Dosage: UNK (SOURCE B HEPARIN SODIUM 10 IU/ML)
     Route: 065
  8. HEPARIN SODIUM. [Suspect]
     Active Substance: HEPARIN SODIUM
     Dosage: UNK (SOURCE B HEPARIN SODIUM 10 IU/ML)
     Route: 065
  9. SODIUM CHLORIDE. [Suspect]
     Active Substance: SODIUM CHLORIDE
     Dosage: UNK (RECONSTITUTED MEROPENEM IN A BAXTER SALINE INTERMATE)
     Route: 065
     Dates: start: 20190408
  10. SODIUM CHLORIDE. [Suspect]
     Active Substance: SODIUM CHLORIDE
     Dosage: UNK (USED IN COMPOUNDING SOURCE B HEPARIN SODIUM 10 IU/ML)
     Route: 065

REACTIONS (2)
  - Body temperature increased [Recovering/Resolving]
  - Influenza like illness [Recovering/Resolving]

NARRATIVE: CASE EVENT DATE: 20190423
